FAERS Safety Report 13049740 (Version 1)
Quarter: 2016Q4

REPORT INFORMATION
  Report Type: Spontaneous
  Country: CH (occurrence: CH)
  Receive Date: 20161221
  Receipt Date: 20161221
  Transmission Date: 20170207
  Serious: Yes (Disabling, Other)
  Sender: FDA-Public Use
  Company Number: CH-AMGEN-CHESP2016177285

PATIENT
  Age: 70 Year
  Sex: Female
  Weight: 58.9 kg

DRUGS (17)
  1. FRESUBIN PROTEIN ENERGY [Concomitant]
     Dosage: 200 ML, TID
     Route: 048
  2. NOVALGIN [Concomitant]
     Active Substance: METAMIZOLE SODIUM
     Dosage: 500 MG, QID
     Route: 048
  3. VALVERDE VERSTOPFUNG [Concomitant]
     Dosage: 0 TO 10 ML, UNK
     Route: 048
  4. DUROGESIC [Concomitant]
     Active Substance: FENTANYL
     Dosage: 25 MCG/HR, EVERY THREE DAYS
     Route: 062
  5. MYDOCALM [Concomitant]
     Active Substance: TOLPERISONE
     Dosage: 150 MG, TID
     Route: 048
  6. LAXOBERON [Concomitant]
     Active Substance: SODIUM PICOSULFATE
     Dosage: UNK UNK, QD
     Route: 048
  7. LYRICA [Concomitant]
     Active Substance: PREGABALIN
     Dosage: 75 MG, BID
     Route: 048
  8. SUPRADYN [Concomitant]
     Active Substance: ASCORBIC ACID\MINERALS\VITAMINS
     Dosage: UNK UNK, QD
     Route: 048
  9. NEXIUM [Suspect]
     Active Substance: ESOMEPRAZOLE MAGNESIUM
     Indication: PRODUCT USED FOR UNKNOWN INDICATION
     Dosage: UNK
     Route: 048
  10. DAFALGAN [Concomitant]
     Active Substance: ACETAMINOPHEN
     Dosage: 500 MG, AS NECESSARY
     Route: 048
  11. KALIUM HAUSMANN [Concomitant]
     Dosage: UNK UNK, TID
     Route: 048
  12. PRIMPERAN [Concomitant]
     Active Substance: METOCLOPRAMIDE HYDROCHLORIDE
     Dosage: 10 MG, AS NECESSARY
     Route: 048
  13. DUPHALAC [Concomitant]
     Active Substance: LACTULOSE
     Dosage: UNK UNK, AS NECESSARY
     Route: 048
  14. OXYNORM [Concomitant]
     Active Substance: OXYCODONE HYDROCHLORIDE
     Dosage: 5 MG, Q3H
     Route: 048
  15. PROLIA [Suspect]
     Active Substance: DENOSUMAB
     Indication: OSTEOPOROSIS
     Dosage: 60 MG, Q6MO
     Route: 058
     Dates: start: 201108, end: 201602
  16. CALCIMAGON D3 [Concomitant]
     Active Substance: CALCIUM\CHOLECALCIFEROL
     Dosage: UNK UNK, QD
     Route: 048
  17. DUROGESIC [Concomitant]
     Active Substance: FENTANYL
     Dosage: 12 MCG/HR, EVERY THREE DAYS
     Route: 062

REACTIONS (4)
  - Thoracic vertebral fracture [Not Recovered/Not Resolved]
  - Rebound effect [Not Recovered/Not Resolved]
  - Lumbar vertebral fracture [Not Recovered/Not Resolved]
  - Bone density decreased [Not Recovered/Not Resolved]

NARRATIVE: CASE EVENT DATE: 2016
